FAERS Safety Report 5337917-X (Version None)
Quarter: 2007Q2

REPORT INFORMATION
  Report Type: 
  Country: None (occurrence: None)
  Receive Date: 20070327
  Receipt Date: 20070127
  Transmission Date: 20071010
  Serious: No
  Sender: FDA-Public Use
  Company Number: 226302

PATIENT
  Sex: Female

DRUGS (3)
  1. AVASTIN [Suspect]
     Indication: LUNG NEOPLASM MALIGNANT
     Dates: start: 20051101, end: 20060401
  2. CARBOPLATIN [Concomitant]
  3. GEMZAR [Concomitant]

REACTIONS (1)
  - HAEMOPTYSIS [None]
